FAERS Safety Report 5607942-X (Version None)
Quarter: 2008Q1

REPORT INFORMATION
  Report Type: 
  Country: None (occurrence: None)
  Receive Date: 20080130
  Receipt Date: 20080125
  Transmission Date: 20080703
  Serious: Yes (Hospitalization)
  Sender: FDA-Public Use
  Company Number: GB-MERCK-0801GBR00099

PATIENT
  Age: 48 Month
  Sex: Male

DRUGS (1)
  1. SINGULAIR [Suspect]
     Indication: ASTHMA
     Route: 048
     Dates: start: 20080119, end: 20080121

REACTIONS (3)
  - ABDOMINAL PAIN [None]
  - ABNORMAL DREAMS [None]
  - EYE SWELLING [None]
